FAERS Safety Report 5579988-1 (Version None)
Quarter: 2007Q4

REPORT INFORMATION
  Report Type: 
  Country: None (occurrence: None)
  Receive Date: 20071227
  Receipt Date: 20071227
  Transmission Date: 20080405
  Serious: Yes (Disabling, Other)
  Sender: FDA-Public Use
  Company Number: None

PATIENT
  Age: 38 Year
  Sex: Female
  Weight: 72.5755 kg

DRUGS (2)
  1. CYMBALTA [Suspect]
     Indication: BIPOLAR DISORDER
     Dosage: 60 MG 2 CAPSULES 1 X A D PO
     Route: 048
     Dates: start: 20060615, end: 20071221
  2. CYMBALTA [Suspect]
     Indication: DEPRESSION
     Dosage: 60 MG 2 CAPSULES 1 X A D PO
     Route: 048
     Dates: start: 20060615, end: 20071221

REACTIONS (6)
  - ARTHRALGIA [None]
  - DIZZINESS [None]
  - FIBROMYALGIA [None]
  - MYALGIA [None]
  - PAIN [None]
  - SUICIDAL IDEATION [None]
